FAERS Safety Report 6341920-0 (Version None)
Quarter: 2009Q3

REPORT INFORMATION
  Report Type: 
  Country: None (occurrence: None)
  Receive Date: 20090904
  Receipt Date: 20090828
  Transmission Date: 20100115
  Serious: Yes (Hospitalization)
  Sender: FDA-Public Use
  Company Number: PHHO2009KR10586

PATIENT
  Sex: Male
  Weight: 77.2 kg

DRUGS (5)
  1. AMN107 AMN+CAP [Suspect]
     Indication: ACUTE LYMPHOCYTIC LEUKAEMIA
     Dosage: 800MG DAILY
     Route: 048
     Dates: start: 20090521, end: 20090817
  2. CYTARABINE [Suspect]
     Dosage: UNK
  3. CYTARABINE [Suspect]
     Dosage: 2000 MG/M2
     Route: 042
     Dates: start: 20090805, end: 20090808
  4. ETOPOSIDE [Suspect]
     Dosage: UNK
  5. ETOPOSIDE [Suspect]
     Dosage: 150MG/M2
     Route: 042
     Dates: start: 20090805, end: 20090808

REACTIONS (3)
  - DIARRHOEA [None]
  - FEBRILE NEUTROPENIA [None]
  - NEUTROPENIC COLITIS [None]
